FAERS Safety Report 16548541 (Version 1)
Quarter: 2019Q3

REPORT INFORMATION
  Report Type: Spontaneous
  Country: DE (occurrence: DE)
  Receive Date: 20190709
  Receipt Date: 20190709
  Transmission Date: 20191004
  Serious: Yes (Other)
  Sender: FDA-Public Use
  Company Number: DE-MYLANLABS-2019M1064036

PATIENT
  Sex: Female

DRUGS (2)
  1. TRAMADOL. [Suspect]
     Active Substance: TRAMADOL
     Indication: PAIN
     Dosage: UNKNOWN FORM STRENGTH
  2. PROCAIN                            /00000902/ [Suspect]
     Active Substance: PENICILLIN G PROCAINE
     Indication: PRODUCT USED FOR UNKNOWN INDICATION
     Dosage: UNKNOWN FORM STRENGTH, USED 7 INFUSIONS
     Dates: start: 201810, end: 201812

REACTIONS (4)
  - Arrhythmia [Unknown]
  - Vomiting [Unknown]
  - Chronic gastritis [Unknown]
  - Nausea [Unknown]

NARRATIVE: CASE EVENT DATE: 201812
